FAERS Safety Report 17088614 (Version 1)
Quarter: 2019Q4

REPORT INFORMATION
  Report Type: Spontaneous
  Country: UA (occurrence: UA)
  Receive Date: 20191128
  Receipt Date: 20191128
  Transmission Date: 20200122
  Serious: Yes (Hospitalization)
  Sender: FDA-Public Use
  Company Number: UA-TEVA-2019-UA-1144683

PATIENT
  Age: 16 Year
  Sex: Female

DRUGS (1)
  1. SUMAMED [Suspect]
     Active Substance: AZITHROMYCIN ANHYDROUS
     Dosage: TOOK HALF OF TABLET ON 22-NOV-2019 AND 23-NOV-2019
     Dates: start: 20191122

REACTIONS (2)
  - Dermatitis allergic [Not Recovered/Not Resolved]
  - Ear swelling [Unknown]

NARRATIVE: CASE EVENT DATE: 201911
